FAERS Safety Report 7305274-5 (Version None)
Quarter: 2011Q1

REPORT INFORMATION
  Report Type: 
  Country: None (occurrence: None)
  Receive Date: 20110222
  Receipt Date: 20110215
  Transmission Date: 20110831
  Serious: Yes (Hospitalization)
  Sender: FDA-Public Use
  Company Number: DE-PFIZER INC-2011033885

PATIENT
  Age: 44 Year
  Sex: Male
  Weight: 91.6 kg

DRUGS (8)
  1. LEVOTHYROXINE [Concomitant]
     Indication: HYPOTHYROIDISM
     Dosage: 150 UG, 1X/DAY
     Dates: start: 20071106
  2. TESTOSTERONE [Concomitant]
     Indication: HYPOGONADISM
     Dosage: 50 MG, 1X/DAY
     Dates: start: 20060616
  3. SIMVASTATIN [Concomitant]
     Indication: HYPERLIPIDAEMIA
     Dosage: 10 MG, 1X/DAY
     Dates: start: 20060615
  4. SOMATROPIN [Suspect]
     Indication: HYPOPITUITARISM
     Dosage: 0.2 MG, 1X/DAY
     Dates: start: 19990507
  5. ACETYLSALICYLIC ACID [Concomitant]
     Dosage: 100 MG, 1X/DAY
     Dates: start: 19970701
  6. HYDROCORTISONE [Concomitant]
     Indication: BLOOD CORTISOL DECREASED
     Dosage: 15 UG, 1X/DAY
     Dates: start: 20071106
  7. ALLOPURINOL [Concomitant]
     Indication: BLOOD URIC ACID INCREASED
     Dosage: 100 MG, 1X/DAY
     Dates: start: 20071016
  8. RAMIPRIL [Concomitant]
     Indication: HYPERTENSION
     Dosage: 10 MG, 1X/DAY
     Dates: start: 20070131

REACTIONS (1)
  - CHONDROPATHY [None]
